FAERS Safety Report 20798792 (Version 1)
Quarter: 2022Q2

REPORT INFORMATION
  Report Type: Spontaneous
  Country: AU (occurrence: AU)
  Receive Date: 20220507
  Receipt Date: 20220507
  Transmission Date: 20220721
  Serious: Yes (Other)
  Sender: FDA-Public Use
  Company Number: AU-MLMSERVICE-20220426-3519360-1

PATIENT
  Sex: Male

DRUGS (8)
  1. METHOTREXATE [Suspect]
     Active Substance: METHOTREXATE
     Indication: VEXAS syndrome
  2. MYCOPHENOLATE MOFETIL [Suspect]
     Active Substance: MYCOPHENOLATE MOFETIL
     Indication: VEXAS syndrome
  3. RITUXIMAB [Concomitant]
     Active Substance: RITUXIMAB
     Indication: VEXAS syndrome
  4. PREDNISONE [Concomitant]
     Active Substance: PREDNISONE
     Indication: VEXAS syndrome
  5. METHYLPREDNISOLONE [Concomitant]
     Active Substance: METHYLPREDNISOLONE
     Indication: VEXAS syndrome
     Dosage: STRENGTH: 500MG
  6. ADALIMUMAB [Concomitant]
     Active Substance: ADALIMUMAB
     Indication: VEXAS syndrome
  7. ETANERCEPT [Concomitant]
     Active Substance: ETANERCEPT
     Indication: VEXAS syndrome
  8. TOCILIZUMAB [Concomitant]
     Active Substance: TOCILIZUMAB
     Indication: VEXAS syndrome

REACTIONS (2)
  - Cytopenia [Unknown]
  - Off label use [Unknown]
